FAERS Safety Report 5384255-5 (Version None)
Quarter: 2007Q3

REPORT INFORMATION
  Report Type: 
  Country: None (occurrence: None)
  Receive Date: 20070710
  Receipt Date: 20060515
  Transmission Date: 20080115
  Serious: Yes (Hospitalization)
  Sender: FDA-Public Use
  Company Number: 2006-01170

PATIENT
  Age: 69 Year
  Sex: Female
  Weight: 88 kg

DRUGS (16)
  1. VELCADE [Suspect]
     Indication: MULTIPLE MYELOMA
     Dosage: 1.30 MG/M2, IV BOLUS
     Route: 040
     Dates: start: 20060508, end: 20060511
  2. LISINOPRIL [Concomitant]
  3. LASIX [Concomitant]
  4. KLOR-CON [Concomitant]
  5. ACETYLSALICYLIC ACID SRT [Concomitant]
  6. SENOKOT [Concomitant]
  7. PREMPRO [Concomitant]
  8. THERAGRAN (VITAMINS NOS) [Concomitant]
  9. EFFEXOR [Concomitant]
  10. XANAX [Concomitant]
  11. PREVACID [Concomitant]
  12. COMBIVENT [Concomitant]
  13. ANUSOL (ZINC OXIDE, PERUVIAN BALSAM, BISMUTH SUBGALLATE, BORIC ACID, B [Concomitant]
  14. CLARITIN [Concomitant]
  15. RIOPAN (MAGALDRATE) [Concomitant]
  16. ACETAMINOPHEN [Concomitant]

REACTIONS (1)
  - PANCREATITIS [None]
